FAERS Safety Report 23247961 (Version 1)
Quarter: 2023Q4

REPORT INFORMATION
  Report Type: Spontaneous
  Country: US (occurrence: US)
  Receive Date: 20231130
  Receipt Date: 20231130
  Transmission Date: 20240109
  Serious: Yes (Hospitalization, Other)
  Sender: FDA-Public Use
  Company Number: US-Covis Pharma GmbH-2023COV01845

PATIENT
  Age: 57 Year
  Sex: Male

DRUGS (1)
  1. LANOXIN [Suspect]
     Active Substance: DIGOXIN
     Route: 042

REACTIONS (1)
  - Mycobacterium avium complex infection [Unknown]
